FAERS Safety Report 13263901 (Version 2)
Quarter: 2017Q1

REPORT INFORMATION
  Report Type: Spontaneous
  Country: US (occurrence: US)
  Receive Date: 20170223
  Receipt Date: 20170329
  Transmission Date: 20170428
  Serious: No
  Sender: FDA-Public Use
  Company Number: US-PFIZER INC-2017080867

PATIENT
  Age: 63 Year
  Sex: Male

DRUGS (1)
  1. LYRICA [Suspect]
     Active Substance: PREGABALIN
     Indication: PAIN IN EXTREMITY
     Dosage: UNK, 2X/DAY [ONE IN THE MORNING AND ONE AT NIGHT]

REACTIONS (4)
  - Pain [Unknown]
  - Dysstasia [Unknown]
  - Migraine [Unknown]
  - Withdrawal syndrome [Unknown]
